FAERS Safety Report 4327868-1 (Version None)
Quarter: 2004Q1

REPORT INFORMATION
  Report Type: 
  Country: None (occurrence: None)
  Receive Date: 20040330
  Receipt Date: 20040317
  Transmission Date: 20041129
  Serious: Yes (Other)
  Sender: FDA-Public Use
  Company Number: 2004018246

PATIENT
  Age: 26 Year
  Sex: Female
  Weight: 47.6277 kg

DRUGS (2)
  1. VISINE EYE DROPS [Suspect]
     Indication: EYE IRRITATION
     Dosage: 1-2 DROPS OU BID, OPHTHALMIC
     Route: 047
     Dates: start: 20030701, end: 20030901
  2. PRENATAL VITAMINS (ASCORBIC ACID, BIOTIN, TOCOPHEROL, NICOTINIC ACID, [Suspect]
     Indication: VITAMIN SUPPLEMENTATION
     Dosage: ORAL
     Route: 048

REACTIONS (2)
  - MACULAR DEGENERATION [None]
  - VISION BLURRED [None]
